FAERS Safety Report 8492077-1 (Version None)
Quarter: 2012Q2

REPORT INFORMATION
  Report Type: 
  Country: None (occurrence: None)
  Receive Date: 20120627
  Receipt Date: 20120613
  Transmission Date: 20120825
  Serious: Yes (Hospitalization)
  Sender: FDA-Public Use
  Company Number: IPC201206-000246

PATIENT
  Age: 50 Year
  Sex: Female

DRUGS (5)
  1. LICORICE [Suspect]
  2. CALCIUM-VITAMIN D SUPPLEMENTS [Suspect]
  3. HYDROCHLOROTHIAZIDE [Suspect]
     Indication: HYPERTENSION
     Dosage: 25 MG/DAY
  4. SERTRALINE HYDROCHLORIDE [Suspect]
  5. QUETIAPINE [Suspect]

REACTIONS (6)
  - RHABDOMYOLYSIS [None]
  - HYPOPHOSPHATAEMIA [None]
  - HYPOKALAEMIA [None]
  - HYPOCALCAEMIA [None]
  - HYPERPARATHYROIDISM [None]
  - HYPERTENSION [None]
